FAERS Safety Report 18332109 (Version 2)
Quarter: 2020Q4

REPORT INFORMATION
  Report Type: Report from Study
  Country: FR (occurrence: FR)
  Receive Date: 20200930
  Receipt Date: 20201102
  Transmission Date: 20210113
  Serious: Yes (Other)
  Sender: FDA-Public Use
  Company Number: FR-JNJFOC-20190825799

PATIENT

DRUGS (3)
  1. SIMPONI [Suspect]
     Active Substance: GOLIMUMAB
     Indication: PSORIATIC ARTHROPATHY
  2. SIMPONI [Suspect]
     Active Substance: GOLIMUMAB
     Indication: AXIAL SPONDYLOARTHRITIS
     Route: 058
  3. SIMPONI [Suspect]
     Active Substance: GOLIMUMAB
     Indication: RHEUMATOID ARTHRITIS

REACTIONS (9)
  - Treatment failure [Unknown]
  - Pericarditis [Unknown]
  - Cervical conisation [Unknown]
  - Drug intolerance [Unknown]
  - Central nervous system lesion [Unknown]
  - Cervical dysplasia [Unknown]
  - Exposure during pregnancy [Unknown]
  - Thrombocytopenia [Unknown]
  - Drug ineffective [Unknown]
